FAERS Safety Report 13665854 (Version 1)
Quarter: 2017Q2

REPORT INFORMATION
  Report Type: Report from Study
  Country: US (occurrence: US)
  Receive Date: 20170619
  Receipt Date: 20170619
  Transmission Date: 20170830
  Serious: Yes (Hospitalization, Other)
  Sender: FDA-Public Use
  Company Number: US-GILEAD-2017-0278674

PATIENT
  Age: 66 Year
  Sex: Female

DRUGS (1)
  1. AMBRISENTAN [Suspect]
     Active Substance: AMBRISENTAN
     Indication: PRODUCT USED FOR UNKNOWN INDICATION
     Dosage: 5 MG, QD
     Route: 065

REACTIONS (4)
  - Bronchitis [Not Recovered/Not Resolved]
  - Unevaluable event [Not Recovered/Not Resolved]
  - Viral upper respiratory tract infection [Not Recovered/Not Resolved]
  - Cardiac failure congestive [Unknown]
